FAERS Safety Report 18417693 (Version 1)
Quarter: 2020Q4

REPORT INFORMATION
  Report Type: Spontaneous
  Country: US (occurrence: US)
  Receive Date: 20201022
  Receipt Date: 20201022
  Transmission Date: 20210114
  Serious: No
  Sender: FDA-Public Use
  Company Number: US-SEATTLE GENETICS-2020SGN03701

PATIENT
  Sex: Female

DRUGS (2)
  1. TUKYSA [Suspect]
     Active Substance: TUCATINIB
     Indication: BREAST CANCER FEMALE
     Dosage: 1 TABLET IN THE MORNING AND 1 TABLET IN THE EVENING
     Route: 048
  2. XELODA [Concomitant]
     Active Substance: CAPECITABINE

REACTIONS (10)
  - Ingrowing nail [Unknown]
  - Unevaluable event [Unknown]
  - Nail discolouration [Unknown]
  - Red blood cell count decreased [Unknown]
  - Gastrointestinal disorder [Recovering/Resolving]
  - Nausea [Recovering/Resolving]
  - Diarrhoea [Recovering/Resolving]
  - Dizziness [Recovering/Resolving]
  - White blood cell count decreased [Unknown]
  - Onychalgia [Unknown]
